FAERS Safety Report 14855211 (Version 1)
Quarter: 2018Q2

REPORT INFORMATION
  Report Type: Spontaneous
  Country: US (occurrence: US)
  Receive Date: 20180507
  Receipt Date: 20180507
  Transmission Date: 20180711
  Serious: No
  Sender: FDA-Public Use
  Company Number: US-ROCHE-1945978

PATIENT
  Sex: Male

DRUGS (3)
  1. ESBRIET [Suspect]
     Active Substance: PIRFENIDONE
     Indication: IDIOPATHIC PULMONARY FIBROSIS
     Route: 048
     Dates: start: 20170530
  2. ESBRIET [Suspect]
     Active Substance: PIRFENIDONE
     Dosage: 1CAP TID FOR 1WK, 2CAPS TID 1WK, 3CAPS TID DAILY
     Route: 048
     Dates: start: 20170523
  3. NEXIUM 24HR [Concomitant]
     Active Substance: ESOMEPRAZOLE MAGNESIUM
     Dosage: CPD
     Route: 065

REACTIONS (5)
  - Fatigue [Recovered/Resolved]
  - Drug dose omission [Unknown]
  - Abdominal discomfort [Recovered/Resolved]
  - Fatigue [Not Recovered/Not Resolved]
  - Headache [Not Recovered/Not Resolved]
